FAERS Safety Report 6567920-3 (Version None)
Quarter: 2010Q1

REPORT INFORMATION
  Report Type: 
  Country: None (occurrence: None)
  Receive Date: 20100203
  Receipt Date: 20100127
  Transmission Date: 20100710
  Serious: Yes (Other)
  Sender: FDA-Public Use
  Company Number: FR-JNJFOC-20100200231

PATIENT
  Age: 22 Year
  Sex: Male

DRUGS (1)
  1. RISPERDAL COSNTA [Suspect]
     Indication: SCHIZOPHRENIA
     Route: 065

REACTIONS (2)
  - FORMICATION [None]
  - PARAESTHESIA [None]
